FAERS Safety Report 5758883-9 (Version None)
Quarter: 2008Q2

REPORT INFORMATION
  Report Type: 
  Country: None (occurrence: None)
  Receive Date: 20080604
  Receipt Date: 20080527
  Transmission Date: 20081010
  Serious: Yes (Hospitalization)
  Sender: FDA-Public Use
  Company Number: PHHO2008JP06843

PATIENT
  Sex: Male
  Weight: 67 kg

DRUGS (1)
  1. ICL670A ICL+DISTAB [Suspect]
     Indication: HAEMOSIDEROSIS
     Dosage: 1375 MG / DAY
     Route: 048
     Dates: start: 20080429, end: 20080526

REACTIONS (3)
  - ANOREXIA [None]
  - INFECTION [None]
  - PYREXIA [None]
